FAERS Safety Report 8473488-7 (Version None)
Quarter: 2012Q2

REPORT INFORMATION
  Report Type: 
  Country: None (occurrence: None)
  Receive Date: 20120625
  Receipt Date: 20120625
  Transmission Date: 20120825
  Serious: No
  Sender: FDA-Public Use
  Company Number: None

PATIENT
  Age: 73 Year
  Sex: Female
  Weight: 74.3899 kg

DRUGS (1)
  1. EQUATE CITRUS ANTISEPTIC MOUTHWA 20 ML VI-JON, SMYRNA, TN [Suspect]
     Indication: GINGIVITIS
     Dosage: 20 ML DAILY X2 PO
     Route: 048
     Dates: start: 20120601, end: 20120620

REACTIONS (3)
  - MUSCLE TIGHTNESS [None]
  - SKIN BURNING SENSATION [None]
  - CHEST PAIN [None]
